FAERS Safety Report 16892405 (Version 1)
Quarter: 2019Q4

REPORT INFORMATION
  Report Type: Spontaneous
  Country: GB (occurrence: GB)
  Receive Date: 20191007
  Receipt Date: 20191007
  Transmission Date: 20200122
  Serious: Yes (Hospitalization, Disabling)
  Sender: FDA-Public Use
  Company Number: GB-MYLANLABS-2019M1092344

PATIENT
  Age: 27 Year
  Sex: Male
  Weight: 82.55 kg

DRUGS (4)
  1. LEMSIP COLD + FLU                  /00312001/ [Concomitant]
     Dosage: UNK
     Dates: start: 201812
  2. FLUOXETINE [Suspect]
     Active Substance: FLUOXETINE HYDROCHLORIDE
     Indication: DEPRESSION
     Dosage: THEN INCREASED TO 40MG/DAY ON 15/01/2019.
     Route: 048
     Dates: start: 20181219, end: 20190115
  3. FLUOXETINE [Suspect]
     Active Substance: FLUOXETINE HYDROCHLORIDE
     Dosage: 40 MILLIGRAM, QD
     Route: 048
     Dates: start: 20190115, end: 20190411
  4. METHOCARBAMOL. [Concomitant]
     Active Substance: METHOCARBAMOL
     Dosage: UNK
     Dates: start: 201812

REACTIONS (9)
  - Coordination abnormal [Recovered/Resolved]
  - Dyskinesia [Recovered/Resolved]
  - Bruxism [Recovering/Resolving]
  - Dyspnoea [Recovered/Resolved]
  - Muscle twitching [Recovered/Resolved]
  - Balance disorder [Recovered/Resolved]
  - Memory impairment [Recovering/Resolving]
  - Palpitations [Recovered/Resolved]
  - Jaw disorder [Recovering/Resolving]

NARRATIVE: CASE EVENT DATE: 20181219
